FAERS Safety Report 8076891-2 (Version None)
Quarter: 2012Q1

REPORT INFORMATION
  Report Type: 
  Country: None (occurrence: None)
  Receive Date: 20120127
  Receipt Date: 20120112
  Transmission Date: 20120608
  Serious: Yes (Other)
  Sender: FDA-Public Use
  Company Number: PHHY2012PL005001

PATIENT
  Age: 73 Year
  Sex: Male

DRUGS (7)
  1. PREDNISONE [Concomitant]
     Dosage: 45 MG, UNK
  2. METHYLPREDNISOLONE [Concomitant]
     Dosage: 4 MG, UNK
  3. CYCLOSPORINE [Suspect]
     Dosage: 200 MG, UNK
  4. CYCLOSPORINE [Suspect]
     Dosage: 125 MG, UNK
  5. CERTICAN [Suspect]
     Indication: RENAL TRANSPLANT
     Dosage: UNK
  6. CYCLOSPORINE [Suspect]
     Indication: RENAL TRANSPLANT
     Dosage: 600 MG, UNK
  7. CERTICAN [Suspect]
     Dosage: 0.25 MG, UNK

REACTIONS (2)
  - NECROSIS ISCHAEMIC [None]
  - IMPAIRED HEALING [None]
